FAERS Safety Report 18606628 (Version 1)
Quarter: 2020Q4

REPORT INFORMATION
  Report Type: Spontaneous
  Country: FR (occurrence: FR)
  Receive Date: 20201211
  Receipt Date: 20201211
  Transmission Date: 20210114
  Serious: Yes (Other)
  Sender: FDA-Public Use
  Company Number: FR-MYLANLABS-2020M1101318

PATIENT
  Age: 20 Year
  Sex: Female
  Weight: 100 kg

DRUGS (2)
  1. SERTRALINE MYLAN 50 MG, G?LULE [Suspect]
     Active Substance: SERTRALINE HYDROCHLORIDE
     Indication: MIXED ANXIETY AND DEPRESSIVE DISORDER
     Dosage: 4 DOSAGE FORM, QD
     Route: 048
     Dates: start: 20191212
  2. QUETIAPINE BIOGARAN LP [Suspect]
     Active Substance: QUETIAPINE FUMARATE
     Indication: MIXED ANXIETY AND DEPRESSIVE DISORDER
     Dosage: 1 DOSAGE FORM, QD
     Route: 048
     Dates: start: 20191212

REACTIONS (5)
  - Fall [Not Recovered/Not Resolved]
  - Dysphagia [Not Recovered/Not Resolved]
  - Orthostatic hypotension [Not Recovered/Not Resolved]
  - Loss of consciousness [Not Recovered/Not Resolved]
  - Choking [Not Recovered/Not Resolved]

NARRATIVE: CASE EVENT DATE: 20201012
